FAERS Safety Report 19489331 (Version 8)
Quarter: 2022Q1

REPORT INFORMATION
  Report Type: Report from Study
  Country: US (occurrence: US)
  Receive Date: 20210703
  Receipt Date: 20220225
  Transmission Date: 20220424
  Serious: Yes (Other)
  Sender: FDA-Public Use
  Company Number: NVSC2021US142844

PATIENT
  Age: 66 Year
  Sex: Female

DRUGS (6)
  1. COSENTYX [Suspect]
     Active Substance: SECUKINUMAB
     Indication: Psoriasis
     Dosage: 300 MG, QMO
     Route: 058
     Dates: start: 20210421
  2. COSENTYX [Suspect]
     Active Substance: SECUKINUMAB
     Dosage: 300 MG, QW
     Route: 058
     Dates: start: 20210427, end: 202107
  3. COSENTYX [Suspect]
     Active Substance: SECUKINUMAB
     Dosage: 300 MG, QMO
     Route: 058
  4. COSENTYX [Suspect]
     Active Substance: SECUKINUMAB
     Dosage: UNK, (LAST DOSE)
     Route: 058
     Dates: start: 20210722
  5. COSENTYX [Suspect]
     Active Substance: SECUKINUMAB
     Dosage: 300 UNK(EVERY WEEK X 5 WEEKS THEN EVERY 4 WEEKS)
     Route: 058
     Dates: start: 20210427
  6. COSENTYX [Suspect]
     Active Substance: SECUKINUMAB
     Dosage: 300 MG, QMO
     Route: 058
     Dates: start: 20210818

REACTIONS (11)
  - Chronic tonsillitis [Recovered/Resolved]
  - Streptococcal infection [Unknown]
  - Dermal cyst [Unknown]
  - Middle ear effusion [Unknown]
  - Abdominal pain [Unknown]
  - Condition aggravated [Unknown]
  - Infectious mononucleosis [Unknown]
  - Anogenital warts [Unknown]
  - Tonsillitis bacterial [Not Recovered/Not Resolved]
  - Diarrhoea [Unknown]
  - Drug ineffective [Unknown]

NARRATIVE: CASE EVENT DATE: 20210601
